FAERS Safety Report 5049099-2 (Version None)
Quarter: 2006Q3

REPORT INFORMATION
  Report Type: 
  Country: None (occurrence: None)
  Receive Date: 20060706
  Receipt Date: 20060626
  Transmission Date: 20061208
  Serious: Yes (Death, Hospitalization)
  Sender: FDA-Public Use
  Company Number: 2006079741

PATIENT
  Age: 74 Year
  Sex: Female

DRUGS (3)
  1. NORVASC [Suspect]
     Dosage: 5 MG, ORAL
     Route: 048
     Dates: end: 20060623
  2. TIZANIDINE HYDROCHLORIDE [Suspect]
     Dosage: ORAL
     Route: 048
     Dates: end: 20060623
  3. DEPAS (ETIZOLAM) [Suspect]
     Dosage: ORAL
     Route: 048
     Dates: end: 20060623

REACTIONS (6)
  - DISSEMINATED INTRAVASCULAR COAGULATION [None]
  - HEPATIC FUNCTION ABNORMAL [None]
  - MALAISE [None]
  - PLATELET COUNT DECREASED [None]
  - PYREXIA [None]
  - RASH [None]
